FAERS Safety Report 12476699 (Version 1)
Quarter: 2016Q2

REPORT INFORMATION
  Report Type: Spontaneous
  Country: NL (occurrence: NL)
  Receive Date: 20160617
  Receipt Date: 20160617
  Transmission Date: 20160815
  Serious: Yes (Life-Threatening, Hospitalization, Other)
  Sender: FDA-Public Use
  Company Number: NL-PFIZER INC-2016302308

PATIENT
  Sex: Female
  Weight: 1 kg

DRUGS (2)
  1. SERTRALINE HCL [Suspect]
     Active Substance: SERTRALINE HYDROCHLORIDE
     Dosage: UNK
  2. SERTRALINE HCL [Suspect]
     Active Substance: SERTRALINE HYDROCHLORIDE
     Indication: DEPRESSION
     Dosage: 50 MG, 1X/DAY
     Route: 064
     Dates: start: 2011

REACTIONS (3)
  - Foetal growth restriction [Recovering/Resolving]
  - Maternal exposure during pregnancy [Recovering/Resolving]
  - Persistent foetal circulation [Recovering/Resolving]
